FAERS Safety Report 7342949-6 (Version None)
Quarter: 2011Q1

REPORT INFORMATION
  Report Type: 
  Country: None (occurrence: None)
  Receive Date: 20110310
  Receipt Date: 20110224
  Transmission Date: 20110831
  Serious: Yes (Other)
  Sender: FDA-Public Use
  Company Number: PHHY2011US15126

PATIENT
  Sex: Female

DRUGS (2)
  1. ZELNORM [Suspect]
     Dosage: UNK
     Route: 048
  2. HERBAL PREPARATION [Concomitant]
     Dosage: UNK

REACTIONS (1)
  - INTESTINAL OBSTRUCTION [None]
